FAERS Safety Report 9390259 (Version 1)
Quarter: 2013Q3

REPORT INFORMATION
  Report Type: Spontaneous
  Country: FR (occurrence: FR)
  Receive Date: 20130709
  Receipt Date: 20130709
  Transmission Date: 20140515
  Serious: Yes (Hospitalization)
  Sender: FDA-Public Use
  Company Number: FR-PFIZER INC-2013188618

PATIENT
  Age: 65 Year
  Sex: Male

DRUGS (10)
  1. CELEBREX [Suspect]
     Dosage: 1 DF, AS NEEDED
  2. COTAREG [Concomitant]
     Dosage: UNK
  3. ALLOPURINOL [Concomitant]
     Dosage: UNK
  4. OMEPRAZOLE [Concomitant]
     Dosage: UNK
  5. ATORVASTATIN [Concomitant]
     Dosage: UNK
  6. GLUCOR [Concomitant]
     Indication: DIABETES MELLITUS
     Dosage: UNK
  7. TEMERIT [Concomitant]
     Dosage: UNK
  8. ART 50 [Concomitant]
     Dosage: 1 DF, 2X/DAY
  9. VOLTARENE [Concomitant]
     Dosage: UNK
  10. DOLIPRANE [Concomitant]
     Indication: PAIN
     Dosage: UNK

REACTIONS (1)
  - Renal disorder [Unknown]
